FAERS Safety Report 6239118-X (Version None)
Quarter: 2009Q2

REPORT INFORMATION
  Report Type: 
  Country: None (occurrence: None)
  Receive Date: 20090618
  Receipt Date: 20090618
  Transmission Date: 20091009
  Serious: No
  Sender: FDA-Public Use
  Company Number: None

PATIENT
  Age: 45 Year
  Sex: Female
  Weight: 61.2356 kg

DRUGS (9)
  1. CITALOPRAM HYDROBROMIDE [Suspect]
     Indication: ANXIETY
     Dosage: 20 MG / DAILY
     Dates: start: 20090101, end: 20090201
  2. CITALOPRAM HYDROBROMIDE [Suspect]
     Indication: PREMENSTRUAL SYNDROME
     Dosage: 20 MG / DAILY
     Dates: start: 20090101, end: 20090201
  3. CITALOPRAM HYDROBROMIDE [Suspect]
     Indication: ANXIETY
     Dosage: 20 MG / DAILY
     Dates: start: 20090401, end: 20090501
  4. CITALOPRAM HYDROBROMIDE [Suspect]
     Indication: PREMENSTRUAL SYNDROME
     Dosage: 20 MG / DAILY
     Dates: start: 20090401, end: 20090501
  5. CITALOPRAM HYDROBROMIDE [Suspect]
     Indication: ANXIETY
     Dosage: 20 MG / DAILY
     Dates: start: 20090301, end: 20090401
  6. CITALOPRAM HYDROBROMIDE [Suspect]
     Indication: PREMENSTRUAL SYNDROME
     Dosage: 20 MG / DAILY
     Dates: start: 20090301, end: 20090401
  7. THYROID TAB [Concomitant]
  8. BHRT [Concomitant]
  9. CELEXA [Suspect]

REACTIONS (4)
  - ANXIETY [None]
  - CRYING [None]
  - FEELING OF DESPAIR [None]
  - PRODUCT SUBSTITUTION ISSUE [None]
